FAERS Safety Report 8473149-4 (Version None)
Quarter: 2012Q2

REPORT INFORMATION
  Report Type: 
  Country: None (occurrence: None)
  Receive Date: 20120627
  Receipt Date: 20120620
  Transmission Date: 20120825
  Serious: Yes (Other)
  Sender: FDA-Public Use
  Company Number: AU-PFIZER INC-2012147824

PATIENT
  Sex: Female

DRUGS (3)
  1. PERINDOPRIL ERBUMINE [Concomitant]
  2. CLEOCIN HYDROCHLORIDE [Suspect]
     Indication: INFECTION PROPHYLAXIS
     Dosage: 600 MG, SINGLE
     Route: 048
  3. CARVEDILOL [Concomitant]

REACTIONS (4)
  - HALLUCINATION [None]
  - DIARRHOEA HAEMORRHAGIC [None]
  - HEADACHE [None]
  - CYSTITIS [None]
